APPROVED DRUG PRODUCT: ORNIDYL
Active Ingredient: EFLORNITHINE HYDROCHLORIDE
Strength: 200MG/ML
Dosage Form/Route: INJECTABLE;INJECTION
Application: N019879 | Product #002
Applicant: SANOFI AVENTIS US LLC
Approved: Nov 28, 1990 | RLD: No | RS: No | Type: DISCN